FAERS Safety Report 9228678 (Version 2)
Quarter: 2013Q2

REPORT INFORMATION
  Report Type: Spontaneous
  Country: US (occurrence: US)
  Receive Date: 20130412
  Receipt Date: 20130419
  Transmission Date: 20140414
  Serious: Yes (Other)
  Sender: FDA-Public Use
  Company Number: US-JNJFOC-20130402417

PATIENT
  Sex: Female
  Weight: 43.09 kg

DRUGS (4)
  1. UNSPECIFIED FENTANYL TRANSDERMAL SYSTEM [Suspect]
     Indication: PRODUCT USED FOR UNKNOWN INDICATION
     Route: 062
  2. UNSPECIFIED FENTANYL TRANSDERMAL SYSTEM [Suspect]
     Indication: PRODUCT USED FOR UNKNOWN INDICATION
     Route: 062
  3. INSULIN [Concomitant]
     Indication: DIABETES MELLITUS
     Route: 058
  4. PHENERGAN [Concomitant]
     Indication: VOMITING
     Route: 042

REACTIONS (8)
  - Blindness [Not Recovered/Not Resolved]
  - Leg amputation [Unknown]
  - Diabetes mellitus [Not Recovered/Not Resolved]
  - Dialysis [Unknown]
  - Neuropathy peripheral [Not Recovered/Not Resolved]
  - Diabetic neuropathy [Unknown]
  - Gastric disorder [Not Recovered/Not Resolved]
  - Vomiting [Not Recovered/Not Resolved]
